FAERS Safety Report 18928903 (Version 3)
Quarter: 2021Q1

REPORT INFORMATION
  Report Type: Spontaneous
  Country: UY (occurrence: UY)
  Receive Date: 20210223
  Receipt Date: 20210319
  Transmission Date: 20210420
  Serious: No
  Sender: FDA-Public Use
  Company Number: UY-PFIZER INC-2021146743

PATIENT
  Age: 9 Year
  Sex: Female

DRUGS (1)
  1. GENOTROPIN [Suspect]
     Active Substance: SOMATROPIN
     Indication: HYPOPITUITARISM
     Dosage: 0.6 TO 1 MG, 7 TIMES PER WEEK
     Dates: start: 20171008

REACTIONS (6)
  - Expired device used [Unknown]
  - Device failure [Unknown]
  - Weight fluctuation [Unknown]
  - Device breakage [Unknown]
  - Blood cholesterol abnormal [Unknown]
  - Off label use [Unknown]

NARRATIVE: CASE EVENT DATE: 20171008
